FAERS Safety Report 9205947 (Version 1)
Quarter: 2013Q1

REPORT INFORMATION
  Report Type: Spontaneous
  Country: US (occurrence: None)
  Receive Date: 20120731
  Receipt Date: 20120731
  Transmission Date: 20140127
  Serious: Yes (Other)
  Sender: FDA-Public Use
  Company Number: US201204007627

PATIENT
  Sex: Female

DRUGS (1)
  1. BYETTA (EXENATIDE) PEN, DISPOSABLE [Suspect]

REACTIONS (1)
  - Pancreatitis acute [None]
